FAERS Safety Report 9706007 (Version 1)
Quarter: 2013Q4

REPORT INFORMATION
  Report Type: Spontaneous
  Country: US (occurrence: US)
  Receive Date: 20131122
  Receipt Date: 20131122
  Transmission Date: 20140711
  Serious: Yes (Hospitalization, Other)
  Sender: FDA-Public Use
  Company Number: US-PFIZER INC-2013332312

PATIENT
  Age: 70 Year
  Sex: Female
  Weight: 110 kg

DRUGS (5)
  1. REVATIO [Suspect]
     Indication: PULMONARY HYPERTENSION
     Dosage: 20 MG, 3X/DAY
     Route: 048
     Dates: start: 2008
  2. COUMADIN [Concomitant]
     Dosage: 4 MG, 1X/DAY
  3. POTASSIUM [Concomitant]
     Dosage: 10 MG, 1X/DAY
  4. DIGOXIN [Concomitant]
     Dosage: 1 DF, 1X/DAY
  5. LASIX [Concomitant]
     Dosage: 40 MG, 3X/DAY

REACTIONS (8)
  - Weight increased [Unknown]
  - Fluid retention [Unknown]
  - Dyspnoea [Unknown]
  - Dyspnoea exertional [Unknown]
  - Local swelling [Unknown]
  - Gastric disorder [Unknown]
  - Weight decreased [Unknown]
  - Weight decreased [Unknown]
